FAERS Safety Report 9310448 (Version 4)
Quarter: 2015Q3

REPORT INFORMATION
  Report Type: Spontaneous
  Country: US (occurrence: US)
  Receive Date: 20130527
  Receipt Date: 20150824
  Transmission Date: 20151125
  Serious: Yes (Other)
  Sender: FDA-Public Use
  Company Number: US-PFIZER INC-2013160993

PATIENT
  Age: 54 Year
  Sex: Male
  Weight: 125 kg

DRUGS (16)
  1. LYRICA [Suspect]
     Active Substance: PREGABALIN
     Dosage: 200 MG, 3X/DAY
     Route: 048
     Dates: start: 201305
  2. LANTUS [Concomitant]
     Active Substance: INSULIN GLARGINE
     Dosage: 70 IU, DAILY
     Route: 058
  3. CYMBALTA [Concomitant]
     Active Substance: DULOXETINE HYDROCHLORIDE
     Dosage: 60 MG, 2X/DAY
     Route: 048
  4. FLUTICASONE [Concomitant]
     Active Substance: FLUTICASONE\FLUTICASONE PROPIONATE
     Dosage: 50 ?G, (1-2 SPRAY)
     Route: 045
  5. VIAGRA [Concomitant]
     Active Substance: SILDENAFIL CITRATE
     Dosage: 100 MG, AS NEEDED
     Route: 048
  6. LISINOPRIL/HYDROCHLOORTHIAZIDE [Concomitant]
     Dosage: 1 DF, 1X/DAY (LISINOPRIL 10 MG-HYDROCHLOROTHIAZIDE 12.5 MG)
     Route: 048
  7. ATORVASTATIN [Concomitant]
     Active Substance: ATORVASTATIN
     Dosage: 20 MG, 1X/DAY
     Route: 048
  8. HYDROCODONE/ACETAMINOPHEN [Concomitant]
     Active Substance: ACETAMINOPHEN\HYDROCODONE
     Dosage: 1 DF, 3X/DAY (HYDROCODONE 10 MG-ACETAMINOPHEN 325 MG TABLET)
     Route: 048
  9. LYRICA [Suspect]
     Active Substance: PREGABALIN
     Indication: DIABETIC NEUROPATHY
     Dosage: 50 MG, 3X/DAY
     Route: 048
     Dates: start: 20130516, end: 201305
  10. METFORMIN [Concomitant]
     Active Substance: METFORMIN HYDROCHLORIDE
     Indication: DIABETES MELLITUS
     Dosage: UNK
  11. LISINOPRIL/HYDROCHLOORTHIAZIDE [Concomitant]
     Dosage: 1 DF, 1X/DAY (LISINOPRIL 20 MG-HYDROCHLOROTHIAZIDE 12.5 MG)
     Route: 048
  12. LYRICA [Suspect]
     Active Substance: PREGABALIN
     Indication: DIABETIC NEUROPATHY
     Dosage: 200 MG, 3X/DAY
     Route: 048
     Dates: start: 201304
  13. GLIMEPIRIDE. [Concomitant]
     Active Substance: GLIMEPIRIDE
     Dosage: 4 MG, 2X/DAY (QAM AND QPM)
     Route: 048
  14. BETAMETHASONE DIPROPIONATE. [Concomitant]
     Active Substance: BETAMETHASONE DIPROPIONATE
     Dosage: UNK, 2X/DAY (0.05 % TOPICAL OINTMENT, 1 APPLICATION)
     Route: 061
  15. METOPROLOL TARTRATE. [Concomitant]
     Active Substance: METOPROLOL TARTRATE
     Dosage: 50 MG, 2X/DAY
     Route: 048
  16. TANZEUM [Concomitant]
     Active Substance: ALBIGLUTIDE
     Dosage: 50MG/0.5 ML
     Route: 058

REACTIONS (22)
  - Papilloedema [Unknown]
  - Psoriasis [Unknown]
  - Cellulitis [Unknown]
  - Diabetes mellitus inadequate control [Unknown]
  - Pain [Unknown]
  - Oedema [Unknown]
  - Arthralgia [Unknown]
  - Eye disorder [Unknown]
  - Drug ineffective [Unknown]
  - Blood glucose increased [Not Recovered/Not Resolved]
  - Neuropathy peripheral [Unknown]
  - Rhinitis allergic [Unknown]
  - Vision blurred [Unknown]
  - Pain in extremity [Unknown]
  - Hypertension [Unknown]
  - Hyperlipidaemia [Unknown]
  - Wound [Unknown]
  - Blindness [Unknown]
  - Myalgia [Not Recovered/Not Resolved]
  - Bronchitis [Unknown]
  - Diabetic neuropathy [Unknown]
  - Organic erectile dysfunction [Unknown]

NARRATIVE: CASE EVENT DATE: 2013
